FAERS Safety Report 9689430 (Version 3)
Quarter: 2014Q2

REPORT INFORMATION
  Report Type: Spontaneous
  Country: US (occurrence: US)
  Receive Date: 20131114
  Receipt Date: 20140409
  Transmission Date: 20141212
  Serious: Yes (Hospitalization)
  Sender: FDA-Public Use
  Company Number: US-B.I. PHARMACEUTICALS,INC./RIDGEFIELD-2013-BI-36414BP

PATIENT
  Age: 64 Year
  Sex: Male
  Weight: 113.4 kg

DRUGS (12)
  1. PRADAXA [Suspect]
     Indication: ATRIAL FIBRILLATION
     Dosage: 300 MG
     Route: 065
     Dates: start: 201111, end: 20121109
  2. ALBUTEROL [Concomitant]
     Route: 065
  3. ZYRTEC [Concomitant]
     Route: 065
  4. SINGULAIR [Concomitant]
     Dosage: 10 MG
     Route: 065
  5. MULTIVITAMIN [Concomitant]
     Route: 065
  6. LORTAB [Concomitant]
     Route: 065
  7. ULTRAM [Concomitant]
     Dosage: 100 MG
     Route: 065
  8. EXCEDRIN [Concomitant]
     Route: 065
  9. ASPIRIN [Concomitant]
     Dosage: 81 MG
     Route: 065
  10. LISINOPRIL [Concomitant]
     Dosage: 10 MG
     Route: 065
  11. LIPITOR [Concomitant]
     Dosage: 20 MG
     Route: 065
  12. FISH OIL [Concomitant]
     Route: 065

REACTIONS (2)
  - Myocardial infarction [Recovered/Resolved]
  - Haemorrhagic anaemia [Unknown]
